FAERS Safety Report 5066448-X (Version None)
Quarter: 2006Q3

REPORT INFORMATION
  Report Type: 
  Country: None (occurrence: None)
  Receive Date: 20060801
  Receipt Date: 20060710
  Transmission Date: 20061208
  Serious: Yes (Hospitalization, Other)
  Sender: FDA-Public Use
  Company Number: PHHO2006US11116

PATIENT
  Age: 62 Year
  Sex: Female

DRUGS (26)
  1. SANDOSTATIN LAR [Suspect]
     Indication: NEUROENDOCRINE CARCINOMA
     Dosage: 30MG EVERY 28 DAYS
     Route: 030
     Dates: start: 20060413, end: 20060703
  2. RAD001 [Suspect]
     Indication: NEUROENDOCRINE CARCINOMA
     Dosage: 10 MG, QD
     Route: 048
     Dates: start: 20060413, end: 20060703
  3. KENALOG [Concomitant]
  4. LASIX [Suspect]
  5. LEVOTHYROXINE SODIUM [Concomitant]
  6. ASPIRIN [Concomitant]
  7. TOPROL-XL [Concomitant]
  8. NORVASC [Concomitant]
  9. PRILOSEC [Concomitant]
  10. ADVIL [Concomitant]
  11. DULCOLAX [Concomitant]
  12. IMODIUM [Concomitant]
  13. LOMOTIL [Concomitant]
  14. VICODIN [Concomitant]
  15. ALEVE (CAPLET) [Concomitant]
  16. SYNTHROID [Concomitant]
  17. NEXIUM [Concomitant]
  18. DIGOXIN [Concomitant]
  19. SENOKOT [Concomitant]
  20. MSIR [Concomitant]
  21. ASPIRIN [Concomitant]
  22. METOPROLOL [Concomitant]
  23. FUROSEMIDE [Concomitant]
  24. ROZEREM [Concomitant]
  25. CIPRO [Concomitant]
  26. NITROPASTE [Concomitant]

REACTIONS (32)
  - ANAEMIA [None]
  - AORTIC VALVE INCOMPETENCE [None]
  - ASTHENIA [None]
  - ATRIAL FIBRILLATION [None]
  - BLOOD CREATININE ABNORMAL [None]
  - BLOOD PRESSURE SYSTOLIC INCREASED [None]
  - BRAIN NATRIURETIC PEPTIDE INCREASED [None]
  - BREATH SOUNDS ABNORMAL [None]
  - BRONCHIECTASIS [None]
  - CHEST X-RAY ABNORMAL [None]
  - CHILLS [None]
  - COUGH [None]
  - DIASTOLIC DYSFUNCTION [None]
  - DYSPNOEA EXERTIONAL [None]
  - FLUID OVERLOAD [None]
  - HYPOXIA [None]
  - JUGULAR VEIN DISTENSION [None]
  - NAUSEA [None]
  - NOCTURNAL DYSPNOEA [None]
  - OEDEMA [None]
  - OEDEMA PERIPHERAL [None]
  - ORTHOPNOEA [None]
  - PNEUMONIA [None]
  - PNEUMONITIS [None]
  - PULMONARY FIBROSIS [None]
  - PULMONARY HYPERTENSION [None]
  - PULMONARY OEDEMA [None]
  - RALES [None]
  - RENAL FAILURE ACUTE [None]
  - TRICUSPID VALVE INCOMPETENCE [None]
  - VOMITING [None]
  - WHEEZING [None]
